FAERS Safety Report 13254067 (Version 5)
Quarter: 2018Q3

REPORT INFORMATION
  Report Type: Report from Study
  Country: None (occurrence: US)
  Receive Date: 20170221
  Receipt Date: 20180801
  Transmission Date: 20181010
  Serious: Yes (Hospitalization, Other)
  Sender: FDA-Public Use
  Company Number: US-ABBVIE-17K-163-1875409-00

PATIENT
  Age: 83 Year
  Sex: Female

DRUGS (3)
  1. HUMIRA [Suspect]
     Active Substance: ADALIMUMAB
     Indication: COLITIS ULCERATIVE
     Route: 058
     Dates: start: 201702
  2. HUMIRA [Suspect]
     Active Substance: ADALIMUMAB
     Route: 058
  3. HUMIRA [Suspect]
     Active Substance: ADALIMUMAB
     Indication: CROHN^S DISEASE
     Route: 058
     Dates: start: 201611, end: 201702

REACTIONS (27)
  - Cardiac failure congestive [Recovered/Resolved]
  - Ulcer haemorrhage [Recovering/Resolving]
  - Peripheral swelling [Recovering/Resolving]
  - Dyspnoea [Recovered/Resolved]
  - Pain in extremity [Recovered/Resolved]
  - Vertigo [Not Recovered/Not Resolved]
  - Haematochezia [Recovered/Resolved]
  - Drug effect incomplete [Not Recovered/Not Resolved]
  - Hypertension [Not Recovered/Not Resolved]
  - Abdominal pain [Recovering/Resolving]
  - Defaecation urgency [Recovering/Resolving]
  - Colitis ulcerative [Recovered/Resolved]
  - Fatigue [Recovered/Resolved]
  - Gastrointestinal inflammation [Recovering/Resolving]
  - Joint swelling [Recovering/Resolving]
  - Thyroid disorder [Not Recovered/Not Resolved]
  - Balance disorder [Not Recovered/Not Resolved]
  - Haematochezia [Recovering/Resolving]
  - Intestinal ulcer [Recovered/Resolved]
  - Asthenia [Recovered/Resolved]
  - Gait disturbance [Not Recovered/Not Resolved]
  - Fatigue [Not Recovered/Not Resolved]
  - Dizziness [Not Recovered/Not Resolved]
  - Colitis ulcerative [Unknown]
  - Anaemia [Not Recovered/Not Resolved]
  - Nausea [Recovered/Resolved]
  - Skin ulcer [Not Recovered/Not Resolved]

NARRATIVE: CASE EVENT DATE: 201702
